FAERS Safety Report 7361834-7 (Version None)
Quarter: 2011Q1

REPORT INFORMATION
  Report Type: 
  Country: None (occurrence: None)
  Receive Date: 20110318
  Receipt Date: 20110308
  Transmission Date: 20110831
  Serious: Yes (Hospitalization, Other)
  Sender: FDA-Public Use
  Company Number: US-JNJFOC-20101104530

PATIENT
  Sex: Female
  Weight: 36.5 kg

DRUGS (9)
  1. MESALAMINE [Concomitant]
     Route: 048
  2. INFLIXIMAB, RECOMBINANT [Suspect]
     Indication: CROHN'S DISEASE
     Route: 042
  3. INFLIXIMAB, RECOMBINANT [Suspect]
     Dosage: TOTAL 2 DOSES
     Route: 042
  4. ZOFRAN [Concomitant]
  5. MERCAPTOPURINE [Concomitant]
  6. BUDESONIDE [Concomitant]
  7. METRONIDAZOLE [Concomitant]
  8. PREVACID [Concomitant]
  9. ACETAMINOPHEN [Concomitant]

REACTIONS (3)
  - SMALL INTESTINAL OBSTRUCTION [None]
  - CROHN'S DISEASE [None]
  - CONDITION AGGRAVATED [None]
